FAERS Safety Report 12363631 (Version 2)
Quarter: 2016Q2

REPORT INFORMATION
  Report Type: Spontaneous
  Country: US (occurrence: US)
  Receive Date: 20160512
  Receipt Date: 20160519
  Transmission Date: 20160815
  Serious: Yes (Other)
  Sender: FDA-Public Use
  Company Number: US-MDT-ADR-2016-00861

PATIENT
  Sex: Male

DRUGS (8)
  1. BACLOFEN. [Suspect]
     Active Substance: BACLOFEN
     Dosage: 1421.4 MCG/DAY
     Route: 037
  2. BACLOFEN. [Suspect]
     Active Substance: BACLOFEN
     Route: 048
  3. VALIUM [Suspect]
     Active Substance: DIAZEPAM
     Route: 048
  4. CITALOPRAM [Suspect]
     Active Substance: CITALOPRAM HYDROBROMIDE
     Route: 065
  5. BACLOFEN. [Suspect]
     Active Substance: BACLOFEN
     Dosage: 400 MCG/DAY
     Route: 037
  6. LIORESAL [Suspect]
     Active Substance: BACLOFEN
     Route: 037
     Dates: start: 20160511
  7. BACLOFEN. [Suspect]
     Active Substance: BACLOFEN
     Dosage: 25 MCG/DAY
     Route: 037
  8. KEPPRA [Suspect]
     Active Substance: LEVETIRACETAM
     Route: 065

REACTIONS (7)
  - Muscle spasms [Unknown]
  - Insomnia [Unknown]
  - Adverse drug reaction [Unknown]
  - Muscle spasticity [Recovered/Resolved]
  - Therapeutic response decreased [Recovered/Resolved]
  - Torticollis [Unknown]
  - Pyrexia [Unknown]
